FAERS Safety Report 6407674-4 (Version None)
Quarter: 2009Q4

REPORT INFORMATION
  Report Type: 
  Country: None (occurrence: None)
  Receive Date: 20091020
  Receipt Date: 20091013
  Transmission Date: 20100525
  Serious: Yes (Other)
  Sender: FDA-Public Use
  Company Number: TW-ABBOTT-08P-153-0487091-00

PATIENT
  Age: 30 Year
  Sex: Female
  Weight: 54 kg

DRUGS (3)
  1. REDUCTIL 10MG [Suspect]
     Indication: DRUG USE FOR UNKNOWN INDICATION
     Route: 048
     Dates: start: 20081002, end: 20081101
  2. MULTI-VITAMINE [Concomitant]
     Indication: MEDICAL DIET
     Route: 048
  3. CALCIUM [Concomitant]
     Indication: MEDICAL DIET
     Route: 048

REACTIONS (3)
  - ABDOMINAL PAIN [None]
  - PRE-ECLAMPSIA [None]
  - PREMATURE RUPTURE OF MEMBRANES [None]
